FAERS Safety Report 9200807 (Version 2)
Quarter: 2014Q1

REPORT INFORMATION
  Report Type: Spontaneous
  Country: US (occurrence: US)
  Receive Date: 20130401
  Receipt Date: 20140307
  Transmission Date: 20141002
  Serious: Yes (Other)
  Sender: FDA-Public Use
  Company Number: US-GE HEALTHCARE MEDICAL DIAGNOSTICS-OSCN-PR-1303S-0027

PATIENT
  Sex: Male

DRUGS (2)
  1. OMNISCAN [Suspect]
     Indication: CONVULSION
     Route: 042
     Dates: start: 20060329, end: 20060329
  2. OMNISCAN [Suspect]
     Indication: BACK PAIN
     Route: 042
     Dates: start: 20061014, end: 20061014

REACTIONS (1)
  - Nephrogenic systemic fibrosis [Not Recovered/Not Resolved]
